FAERS Safety Report 22899330 (Version 2)
Quarter: 2023Q4

REPORT INFORMATION
  Report Type: Spontaneous
  Country: DK (occurrence: DK)
  Receive Date: 20230904
  Receipt Date: 20231002
  Transmission Date: 20240109
  Serious: Yes (Hospitalization, Other)
  Sender: FDA-Public Use
  Company Number: DK-NOVOPROD-1107876

PATIENT
  Age: 30 Year
  Sex: Female
  Weight: 111.2 kg

DRUGS (7)
  1. WEGOVY [Suspect]
     Active Substance: SEMAGLUTIDE
     Indication: Obesity
     Dosage: 2.40 MG, QW
     Route: 058
     Dates: start: 20221214
  2. WEGOVY [Suspect]
     Active Substance: SEMAGLUTIDE
     Dosage: 1.7 MG, QW(DOSE DECREASED)
     Route: 058
  3. INFLIXIMAB [Concomitant]
     Active Substance: INFLIXIMAB
     Indication: Psoriasis
     Dosage: 5 MG, PRN
     Route: 042
     Dates: start: 20220720
  4. OMEPRAZOLE [Concomitant]
     Active Substance: OMEPRAZOLE
     Indication: Gastrooesophageal reflux disease
     Dosage: 20 MG, QD
     Route: 048
     Dates: start: 20181211
  5. NORETHINDRONE [Concomitant]
     Active Substance: NORETHINDRONE
     Dosage: UNK
     Route: 048
     Dates: start: 20220920
  6. TRANEXAMIC ACID [Concomitant]
     Active Substance: TRANEXAMIC ACID
     Indication: Haemorrhage
     Dosage: 2 TABLETS MORNING, MIDDAY AND EVENING (NO DOSAGE REPORTED)
     Route: 048
     Dates: start: 20210720
  7. ACETAMINOPHEN [Concomitant]
     Active Substance: ACETAMINOPHEN
     Indication: Pain
     Dosage: UNK (1-2 TABLETS 3-4 TIMES A DAY)
     Route: 048
     Dates: start: 20160718

REACTIONS (2)
  - Loss of consciousness [Recovered/Resolved with Sequelae]
  - Sternal fracture [Unknown]

NARRATIVE: CASE EVENT DATE: 20230501
